FAERS Safety Report 19829021 (Version 1)
Quarter: 2021Q3

REPORT INFORMATION
  Report Type: Spontaneous
  Country: GB (occurrence: GB)
  Receive Date: 20210914
  Receipt Date: 20210914
  Transmission Date: 20211014
  Serious: Yes (Other)
  Sender: FDA-Public Use
  Company Number: GB-PFIZER INC-202101169348

PATIENT
  Age: 92 Year
  Sex: Male
  Weight: 73 kg

DRUGS (1)
  1. PANTOPRAZOLE [Suspect]
     Active Substance: PANTOPRAZOLE
     Dosage: 40 MILLIGRAM
     Route: 065
     Dates: start: 20210828

REACTIONS (1)
  - Swelling [Unknown]

NARRATIVE: CASE EVENT DATE: 20210831
